FAERS Safety Report 24761610 (Version 1)
Quarter: 2024Q4

REPORT INFORMATION
  Report Type: Spontaneous
  Country: BR (occurrence: BR)
  Receive Date: 20241220
  Receipt Date: 20241220
  Transmission Date: 20250115
  Serious: Yes (Other)
  Sender: PFIZER
  Company Number: BR-PFIZER INC-202400326986

PATIENT
  Age: 58 Year
  Sex: Male
  Weight: 79.1 kg

DRUGS (6)
  1. RUXIENCE [Suspect]
     Active Substance: RITUXIMAB-PVVR
     Indication: Follicular lymphoma
     Dosage: 700 MG, CYCLE 2/D1, 1ST INFUSION (500MG (10MG/ML) 50ML AMPOULE)
     Route: 042
     Dates: start: 20241209, end: 20241209
  2. RUXIENCE [Suspect]
     Active Substance: RITUXIMAB-PVVR
     Dosage: 700 MG, CYCLE 2/D1, 1ST INFUSION (100MG (10MG/ML) VIAL 10ML)
     Route: 042
     Dates: start: 20241209, end: 20241209
  3. ACETAMINOPHEN [Concomitant]
     Active Substance: ACETAMINOPHEN
     Indication: Chemotherapy side effect prophylaxis
     Dosage: 750 MG, CYCLIC
     Route: 048
     Dates: start: 20241209, end: 20241209
  4. DIPHENHYDRAMINE [Concomitant]
     Active Substance: DIPHENHYDRAMINE
     Indication: Chemotherapy side effect prophylaxis
     Dosage: 50 MG, CYCLIC, TIME 20 MIN
     Route: 042
     Dates: start: 20241209, end: 20241209
  5. ACYCLOVIR [Concomitant]
     Active Substance: ACYCLOVIR
     Indication: Prophylaxis
     Dosage: UNK
     Route: 048
  6. SULFAMETHOXAZOLE AND TRIMETHOPRIM [Concomitant]
     Active Substance: SULFAMETHOXAZOLE\TRIMETHOPRIM
     Indication: Prophylaxis
     Dosage: UNK
     Route: 048

REACTIONS (2)
  - Papule [Recovered/Resolved]
  - Hyperaemia [Recovered/Resolved]

NARRATIVE: CASE EVENT DATE: 20241209
